FAERS Safety Report 4576802-8 (Version None)
Quarter: 2005Q1

REPORT INFORMATION
  Report Type: 
  Country: None (occurrence: None)
  Receive Date: 20050210
  Receipt Date: 20050131
  Transmission Date: 20050727
  Serious: Yes (Disabling)
  Sender: FDA-Public Use
  Company Number: CA-BRISTOL-MYERS SQUIBB COMPANY-12845939

PATIENT
  Age: 43 Year
  Sex: Female

DRUGS (10)
  1. TAXOL [Suspect]
     Indication: OVARIAN CANCER
     Route: 042
     Dates: start: 20040907, end: 20040907
  2. CARBOPLATIN [Suspect]
     Indication: OVARIAN CANCER
     Route: 042
     Dates: start: 20040907, end: 20040907
  3. DIPHENHYDRAMINE HCL [Concomitant]
  4. RANITIDINE [Concomitant]
  5. DECADRON [Concomitant]
  6. MOMETASONE [Concomitant]
  7. ONDANSETRON [Concomitant]
  8. RAMIPRIL [Concomitant]
  9. SYNTHROID [Concomitant]
  10. HYDROCHLOROTHIAZIDE [Concomitant]

REACTIONS (8)
  - BALANCE DISORDER [None]
  - DIPLOPIA [None]
  - DIZZINESS [None]
  - DYSARTHRIA [None]
  - EYE SWELLING [None]
  - NEUROPATHY [None]
  - NYSTAGMUS [None]
  - PHARYNGOLARYNGEAL PAIN [None]
